FAERS Safety Report 8607684 (Version 3)
Quarter: 2014Q1

REPORT INFORMATION
  Report Type: Spontaneous
  Country: US (occurrence: US)
  Receive Date: 20120611
  Receipt Date: 20140124
  Transmission Date: 20141002
  Serious: Yes (Disabling)
  Sender: FDA-Public Use
  Company Number: US-ASTRAZENECA-2012SE35266

PATIENT
  Age: 48 Year
  Sex: Female
  Weight: 60.8 kg

DRUGS (5)
  1. NEXIUM [Suspect]
     Indication: GASTROOESOPHAGEAL REFLUX DISEASE
     Route: 048
     Dates: start: 2000, end: 2007
  2. NEXIUM [Suspect]
     Indication: GASTROOESOPHAGEAL REFLUX DISEASE
     Dosage: DAILY
     Route: 048
     Dates: start: 2004, end: 2010
  3. ATENOLOL [Concomitant]
     Dates: start: 20080414
  4. LORTAB [Concomitant]
     Dates: start: 20080414
  5. ZETIA [Concomitant]

REACTIONS (10)
  - Activities of daily living impaired [Unknown]
  - Osteoporosis [Unknown]
  - Spinal fracture [Unknown]
  - Multiple fractures [Unknown]
  - Carpal tunnel syndrome [Unknown]
  - Cough [Unknown]
  - Kidney infection [Unknown]
  - Osteopenia [Unknown]
  - Osteoarthritis [Unknown]
  - Compression fracture [Unknown]
